FAERS Safety Report 6371403-3 (Version None)
Quarter: 2009Q3

REPORT INFORMATION
  Report Type: 
  Country: None (occurrence: None)
  Receive Date: 20090923
  Receipt Date: 20090406
  Transmission Date: 20100115
  Serious: No
  Sender: FDA-Public Use
  Company Number: US-ASTRAZENECA-2007UW12136

PATIENT
  Age: 45 Year
  Sex: Male
  Weight: 90.7 kg

DRUGS (8)
  1. SEROQUEL [Suspect]
     Indication: BIPOLAR DISORDER
     Dosage: 300-500 MG
     Route: 048
     Dates: start: 20010321, end: 20050426
  2. ZYPREXA [Concomitant]
     Dates: start: 20010401, end: 20010601
  3. ALLI [Concomitant]
     Dates: start: 20060101
  4. ABILIFY [Concomitant]
     Dates: start: 20050101
  5. HALDOL [Concomitant]
     Dates: start: 19850101
  6. THORAZINE [Concomitant]
     Dates: start: 19850101
  7. LITHIUM [Concomitant]
     Dates: start: 20000616, end: 20050209
  8. MELLARIL [Concomitant]

REACTIONS (6)
  - BLOOD CHOLESTEROL INCREASED [None]
  - BLOOD TRIGLYCERIDES INCREASED [None]
  - DIABETES MELLITUS [None]
  - HYPERGLYCAEMIA [None]
  - OBESITY [None]
  - WEIGHT INCREASED [None]
